FAERS Safety Report 4514502-0 (Version None)
Quarter: 2004Q4

REPORT INFORMATION
  Report Type: 
  Country: None (occurrence: None)
  Receive Date: 20040928
  Receipt Date: 20040628
  Transmission Date: 20050328
  Serious: No
  Sender: FDA-Public Use
  Company Number: 04P-163-0265127

PATIENT
  Age: 79 Year
  Sex: Female

DRUGS (5)
  1. HUMIRA [Suspect]
     Indication: RHEUMATOID ARTHRITIS
     Dosage: 40 MG, 1 IN 2 WK, SUBCUTANEOUS
     Route: 058
  2. PREDNISONE [Concomitant]
  3. METHOTREXATE [Concomitant]
  4. BUCINDOLOL HYDROCHLORIDE [Concomitant]
  5. OXYCOCET [Concomitant]

REACTIONS (2)
  - ECCHYMOSIS [None]
  - SKIN ULCER [None]
